FAERS Safety Report 23733172 (Version 6)
Quarter: 2024Q3

REPORT INFORMATION
  Report Type: Report from Study
  Country: US (occurrence: US)
  Receive Date: 20240411
  Receipt Date: 20240724
  Transmission Date: 20241017
  Serious: No
  Sender: AGIOS PHARMACEUTICALS
  Company Number: US-AGIOS-2404US03723

PATIENT
  Age: 47 Year
  Sex: Female

DRUGS (2)
  1. MITAPIVAT [Suspect]
     Active Substance: MITAPIVAT
     Indication: Pyruvate kinase deficiency anaemia
     Dosage: 20 MILLIGRAM, BID
     Route: 048
     Dates: start: 20240322
  2. MITAPIVAT [Suspect]
     Active Substance: MITAPIVAT
     Dosage: 50 MILLIGRAM
     Route: 048
     Dates: start: 20240323

REACTIONS (11)
  - Arthralgia [Unknown]
  - Pain [Unknown]
  - Malaise [Recovered/Resolved]
  - Purpura [Unknown]
  - Fatigue [Unknown]
  - Limb injury [Unknown]
  - Petechiae [Unknown]
  - Lip swelling [Unknown]
  - Swelling face [Unknown]
  - Renal disorder [Unknown]
  - Laboratory test abnormal [Unknown]

NARRATIVE: CASE EVENT DATE: 20240501
